FAERS Safety Report 15260754 (Version 2)
Quarter: 2018Q3

REPORT INFORMATION
  Report Type: Report from Study
  Country: PK (occurrence: PK)
  Receive Date: 20180809
  Receipt Date: 20180820
  Transmission Date: 20181010
  Serious: Yes (Death, Other)
  Sender: FDA-Public Use
  Company Number: PHHY2018PK066737

PATIENT
  Age: 59 Year
  Sex: Female
  Weight: 64 kg

DRUGS (1)
  1. AFINITOR [Suspect]
     Active Substance: EVEROLIMUS
     Indication: BREAST CANCER
     Dosage: 10 MG, QD
     Route: 048
     Dates: start: 20160822

REACTIONS (6)
  - Feeling cold [Unknown]
  - Cold sweat [Unknown]
  - Loss of consciousness [Unknown]
  - Myocardial infarction [Fatal]
  - Respiratory rate decreased [Unknown]
  - Pallor [Unknown]

NARRATIVE: CASE EVENT DATE: 20180214
